FAERS Safety Report 24192075 (Version 1)
Quarter: 2024Q3

REPORT INFORMATION
  Report Type: Other
  Country: TR (occurrence: TR)
  Receive Date: 20240809
  Receipt Date: 20240809
  Transmission Date: 20241016
  Serious: Yes (Death, Hospitalization, Other)
  Sender: RENATA LIMITED
  Company Number: TR-Renata Limited-2160208

PATIENT
  Age: 17 Year
  Sex: Female

DRUGS (5)
  1. RISPERIDONE [Suspect]
     Active Substance: RISPERIDONE
     Indication: Product used for unknown indication
     Route: 065
  2. SERTRALINE [Suspect]
     Active Substance: SERTRALINE HYDROCHLORIDE
     Route: 065
  3. METFORMIN [Suspect]
     Active Substance: METFORMIN HYDROCHLORIDE
     Route: 065
  4. FLUVOXAMINE MALEATE [Suspect]
     Active Substance: FLUVOXAMINE MALEATE
     Route: 065
  5. FLUOXETINE [Suspect]
     Active Substance: FLUOXETINE HYDROCHLORIDE
     Route: 065

REACTIONS (7)
  - Lactic acidosis [Fatal]
  - Intentional overdose [Unknown]
  - Lethargy [Unknown]
  - Bundle branch block right [Unknown]
  - Electrocardiogram QRS complex prolonged [Unknown]
  - Brugada syndrome [Unknown]
  - Metabolic acidosis [Fatal]
